FAERS Safety Report 9868444 (Version 1)
Quarter: 2014Q1

REPORT INFORMATION
  Report Type: Spontaneous
  Country: BR (occurrence: BR)
  Receive Date: 20140204
  Receipt Date: 20140204
  Transmission Date: 20141002
  Serious: Yes (Hospitalization)
  Sender: FDA-Public Use
  Company Number: BR-B.I. PHARMACEUTICALS,INC./RIDGEFIELD-2014-BI-03910BR

PATIENT
  Age: 74 Year
  Sex: Female
  Weight: 79 kg

DRUGS (6)
  1. PRADAXA [Suspect]
     Indication: THROMBOSIS
     Dosage: 220 MG
     Route: 048
     Dates: start: 201208
  2. PRADAXA [Suspect]
     Indication: CEREBROVASCULAR ACCIDENT
  3. SIMVASTATINA [Concomitant]
     Indication: BLOOD CHOLESTEROL INCREASED
     Dosage: 20 MG
     Route: 048
  4. ENALAPRIL [Concomitant]
     Indication: HYPERTENSION
     Route: 048
  5. CALCIUM CARBONATE [Concomitant]
     Indication: BONE DISORDER
     Dosage: 500 MG
     Route: 048
  6. RANITIDINA [Concomitant]
     Indication: ABDOMINAL DISCOMFORT
     Route: 048

REACTIONS (3)
  - Fall [Recovered/Resolved]
  - Humerus fracture [Recovered/Resolved]
  - Periorbital contusion [Not Recovered/Not Resolved]
